FAERS Safety Report 13032673 (Version 2)
Quarter: 2017Q1

REPORT INFORMATION
  Report Type: Spontaneous
  Country: US (occurrence: US)
  Receive Date: 20161215
  Receipt Date: 20170323
  Transmission Date: 20170428
  Serious: No
  Sender: FDA-Public Use
  Company Number: US-ALLERGAN-1675081US

PATIENT
  Age: 65 Year
  Sex: Female

DRUGS (1)
  1. VIBERZI [Suspect]
     Active Substance: ELUXADOLINE
     Indication: IRRITABLE BOWEL SYNDROME
     Dosage: 75 MG, QD
     Route: 048

REACTIONS (5)
  - Headache [Unknown]
  - Inappropriate schedule of drug administration [Unknown]
  - Burning sensation [Unknown]
  - Nausea [Unknown]
  - Constipation [Recovered/Resolved with Sequelae]
